FAERS Safety Report 20465548 (Version 1)
Quarter: 2022Q1

REPORT INFORMATION
  Report Type: Spontaneous
  Country: US (occurrence: US)
  Receive Date: 20220212
  Receipt Date: 20220212
  Transmission Date: 20220423
  Serious: Yes (Death, Hospitalization)
  Sender: FDA-Public Use
  Company Number: US-JNJFOC-20220214346

PATIENT
  Age: 28 Year
  Sex: Male

DRUGS (2)
  1. DURAGESIC [Suspect]
     Active Substance: FENTANYL
     Indication: Product used for unknown indication
     Route: 045
  2. DURAGESIC [Suspect]
     Active Substance: FENTANYL
     Route: 065

REACTIONS (2)
  - Incorrect route of product administration [Fatal]
  - Toxicity to various agents [Fatal]
